FAERS Safety Report 10008539 (Version 2)
Quarter: 2014Q1

REPORT INFORMATION
  Report Type: Spontaneous
  Country: IT (occurrence: IT)
  Receive Date: 20140313
  Receipt Date: 20140320
  Transmission Date: 20141002
  Serious: Yes (Other)
  Sender: FDA-Public Use
  Company Number: IT-TEVA-466784ISR

PATIENT
  Age: 21 Year
  Sex: Male
  Weight: 65 kg

DRUGS (4)
  1. CISPLATINO TEVA ITALIA [Suspect]
     Indication: TESTICULAR SEMINOMA (PURE) STAGE III
     Dosage: 20 MG/M2 DAILY;
     Route: 042
     Dates: start: 20131203, end: 20140101
  2. ETOPOSIDE TEVA [Suspect]
     Indication: TESTICULAR SEMINOMA (PURE) STAGE III
     Dosage: 100 MG/M2 DAILY;
     Route: 040
     Dates: start: 20131203, end: 20140114
  3. BLEOPRIM [Suspect]
     Indication: TESTICULAR SEMINOMA (PURE) STAGE III
     Dosage: 30 MG/M2 DAILY; POWDER AND SOLVENT FOR SOLUTION FOR INJECTION
     Route: 030
     Dates: start: 20131203, end: 20140114
  4. EMEND 125 MG + 80 MG [Concomitant]
     Indication: TESTICULAR SEMINOMA (PURE) STAGE III
     Dosage: 125 MILLIGRAM DAILY;
     Route: 048

REACTIONS (2)
  - Bronchopneumonia [Recovering/Resolving]
  - Pulmonary embolism [Recovering/Resolving]
